FAERS Safety Report 7383463-1 (Version None)
Quarter: 2011Q1

REPORT INFORMATION
  Report Type: 
  Country: None (occurrence: None)
  Receive Date: 20110330
  Receipt Date: 20110317
  Transmission Date: 20110831
  Serious: Yes (Other)
  Sender: FDA-Public Use
  Company Number: JP-PFIZER INC-2011067276

PATIENT
  Age: 51 Year
  Sex: Male

DRUGS (3)
  1. FLUVASTATIN [Concomitant]
  2. LIPITOR [Suspect]
     Dosage: UNK
     Route: 048
     Dates: start: 20060501, end: 20070601
  3. NICORANDIL [Concomitant]
     Indication: CHEST DISCOMFORT

REACTIONS (3)
  - ARTERIOSPASM CORONARY [None]
  - MYALGIA [None]
  - BLOOD CREATINE PHOSPHOKINASE INCREASED [None]
